FAERS Safety Report 6105667-8 (Version None)
Quarter: 2009Q1

REPORT INFORMATION
  Report Type: 
  Country: None (occurrence: None)
  Receive Date: 20090304
  Receipt Date: 20090304
  Transmission Date: 20090719
  Serious: Yes (Other)
  Sender: FDA-Public Use
  Company Number: None

PATIENT
  Sex: Male
  Weight: 102.27 kg

DRUGS (8)
  1. OXYCODONE HCL [Suspect]
     Dosage: 5MG TABLET 5 MG Q4H ORAL
     Route: 048
     Dates: start: 20081229, end: 20090303
  2. COLACE (DOCUSATE SODIUM) [Concomitant]
  3. CYCLOBENZAPRINE HCL [Concomitant]
  4. FLUTICASONE NASAL SPRAY (FLUTICASONE NASAL SPRAY) [Concomitant]
  5. HYDROCHLOROTHIAZIDE [Concomitant]
  6. IBUPROFEN [Concomitant]
  7. LISINOPRIL [Concomitant]
  8. OXYCONTIN (OXYCODONE CONTROLLED RELEASE) [Concomitant]

REACTIONS (1)
  - NAUSEA [None]
